FAERS Safety Report 14311491 (Version 2)
Quarter: 2017Q4

REPORT INFORMATION
  Report Type: Report from Study
  Country: CH (occurrence: CH)
  Receive Date: 20171221
  Receipt Date: 20171226
  Transmission Date: 20180321
  Serious: Yes (Other)
  Sender: FDA-Public Use
  Company Number: CH-SUN PHARMACEUTICAL INDUSTRIES LTD-2017R1-157363

PATIENT
  Sex: Male

DRUGS (2)
  1. METHOTREXATE. [Suspect]
     Active Substance: METHOTREXATE
     Indication: CROHN^S DISEASE
     Route: 065
  2. CERTOLIZUMAB [Concomitant]
     Active Substance: CERTOLIZUMAB
     Indication: CROHN^S DISEASE
     Route: 065

REACTIONS (1)
  - Hepatic fibrosis [Unknown]
